FAERS Safety Report 6474156-3 (Version None)
Quarter: 2009Q4

REPORT INFORMATION
  Report Type: 
  Country: None (occurrence: None)
  Receive Date: 20091123
  Receipt Date: 20090902
  Transmission Date: 20100525
  Serious: Yes (Other)
  Sender: FDA-Public Use
  Company Number: 8051449

PATIENT
  Age: 47 Year
  Sex: Male
  Weight: 91.6 kg

DRUGS (5)
  1. CIMZIA [Suspect]
     Indication: CROHN'S DISEASE
     Dosage: 400 MG IM
     Route: 030
     Dates: start: 20090409, end: 20090702
  2. PENTASA [Concomitant]
  3. LIALDA [Concomitant]
  4. MIRALAX [Concomitant]
  5. LOCOID 0.1 % [Concomitant]

REACTIONS (1)
  - HEPATITIS ACUTE [None]
